FAERS Safety Report 5069676-2 (Version None)
Quarter: 2006Q3

REPORT INFORMATION
  Report Type: 
  Country: None (occurrence: None)
  Receive Date: 20060731
  Receipt Date: 20060720
  Transmission Date: 20061208
  Serious: Yes (Hospitalization)
  Sender: FDA-Public Use
  Company Number: 2006081725

PATIENT
  Age: 24 Year
  Sex: Female
  Weight: 55.2 kg

DRUGS (5)
  1. ALPRAZOLAM [Suspect]
     Indication: DRUG USE FOR UNKNOWN INDICATION
     Dosage: (0.4 MG, AS NEEDED), ORAL
     Route: 048
     Dates: start: 20040816
  2. RIZE               (CLOTIAZEPAM) [Suspect]
     Indication: DRUG USE FOR UNKNOWN INDICATION
     Dosage: ORAL
     Route: 048
  3. AMITRIPTYLINE HCL [Suspect]
     Indication: DRUG USE FOR UNKNOWN INDICATION
     Dosage: ORAL
     Route: 048
     Dates: start: 20040726, end: 20041002
  4. PZC                   (PERPHENAZINE MALEATE) [Suspect]
     Indication: DRUG USE FOR UNKNOWN INDICATION
     Dosage: ORAL
     Route: 048
  5. MEILAX                 (ETHYL LOFLAZEPA4E) [Suspect]
     Indication: DRUG USE FOR UNKNOWN INDICATION
     Dosage: ORAL
     Route: 048
     Dates: start: 20040528

REACTIONS (6)
  - ANTIPHOSPHOLIPID SYNDROME [None]
  - DRUG TOXICITY [None]
  - FIBRIN D DIMER INCREASED [None]
  - MULTIPLE DRUG OVERDOSE INTENTIONAL [None]
  - PNEUMONIA ASPIRATION [None]
  - PULMONARY EMBOLISM [None]
